FAERS Safety Report 15665240 (Version 1)
Quarter: 2018Q4

REPORT INFORMATION
  Report Type: Spontaneous
  Country: US (occurrence: US)
  Receive Date: 20181128
  Receipt Date: 20181128
  Transmission Date: 20190205
  Serious: No
  Sender: FDA-Public Use
  Company Number: US-PERRIGO-18US000030

PATIENT
  Age: 55 Year
  Sex: Female
  Weight: 77.98 kg

DRUGS (2)
  1. NICOTINE POLACRILEX [Suspect]
     Active Substance: NICOTINE
     Indication: SMOKING CESSATION THERAPY
     Dosage: 4 MG, 8 TO 10 TIMES DAILY, PRN
     Route: 002
     Dates: start: 2016, end: 20171214
  2. NICOTINE POLACRILEX [Suspect]
     Active Substance: NICOTINE
     Dosage: 4 MG, 8 TO 10 TIMES DAILY, PRN
     Route: 002
     Dates: start: 20171215

REACTIONS (3)
  - Exposure to unspecified agent [Recovered/Resolved]
  - Wrong technique in product usage process [Recovered/Resolved]
  - Hiccups [Recovered/Resolved]

NARRATIVE: CASE EVENT DATE: 2016
